FAERS Safety Report 23130121 (Version 1)
Quarter: 2023Q4

REPORT INFORMATION
  Report Type: Spontaneous
  Country: GB (occurrence: GB)
  Receive Date: 20231031
  Receipt Date: 20231031
  Transmission Date: 20240110
  Serious: Yes (Disabling, Other)
  Sender: FDA-Public Use
  Company Number: None

PATIENT
  Age: 71 Year
  Sex: Female
  Weight: 62 kg

DRUGS (4)
  1. PEMBROLIZUMAB [Suspect]
     Active Substance: PEMBROLIZUMAB
     Dosage: DOSE AS PER HOSPITAL PRESCRIPTION
     Dates: start: 20230213, end: 202307
  2. APIXABAN [Concomitant]
     Active Substance: APIXABAN
     Indication: Nephrectomy
     Dosage: FOR 3 MONTHS
     Dates: start: 20230724
  3. PREDNISOLONE [Concomitant]
     Active Substance: PREDNISOLONE
     Dosage: FOR 5 DAYS THEN REDUCE BY ONE TABLET EVERY 2 DAYS UNTIL STOPPED
     Dates: start: 20231018
  4. ZOPICLONE [Concomitant]
     Active Substance: ZOPICLONE
     Indication: Insomnia
     Dosage: ONE OR TWO TO BE TAKEN AT NIGHT (NOT EVERY NIGHT)
     Dates: start: 20231018

REACTIONS (4)
  - Drug eruption [Not Recovered/Not Resolved]
  - Pemphigoid [Not Recovered/Not Resolved]
  - Rash [Not Recovered/Not Resolved]
  - Blister [Not Recovered/Not Resolved]
